FAERS Safety Report 8161695-2 (Version None)
Quarter: 2012Q1

REPORT INFORMATION
  Report Type: 
  Country: None (occurrence: None)
  Receive Date: 20120224
  Receipt Date: 20110107
  Transmission Date: 20120608
  Serious: No
  Sender: FDA-Public Use
  Company Number: US-BRISTOL-MYERS SQUIBB COMPANY-15469745

PATIENT
  Age: 62 Year
  Sex: Male
  Weight: 100 kg

DRUGS (5)
  1. LEVOXYL [Concomitant]
  2. ACTOS [Concomitant]
  3. GLIPIZIDE [Concomitant]
  4. METFORMIN HCL [Suspect]
     Dosage: HE STARTED TAKING METFORMING 1000MG TWICE A DAY
     Dates: start: 20101101
  5. SIMVASTATIN [Concomitant]

REACTIONS (6)
  - ACCIDENTAL OVERDOSE [None]
  - MEDICATION ERROR [None]
  - ASTHENIA [None]
  - DISORIENTATION [None]
  - ANAEMIA [None]
  - BLOOD GLUCOSE INCREASED [None]
